FAERS Safety Report 7226731-6 (Version None)
Quarter: 2011Q1

REPORT INFORMATION
  Report Type: 
  Country: None (occurrence: None)
  Receive Date: 20110105
  Receipt Date: 20101229
  Transmission Date: 20110831
  Serious: Yes (Hospitalization)
  Sender: FDA-Public Use
  Company Number: DSA_44600_2010

PATIENT
  Age: 62 Year
  Sex: Female

DRUGS (4)
  1. LEOXMIL (LEXOMIL - BROMAZEPAM ) 3 ML (NOT SPECIFIED) [Suspect]
     Indication: ANXIETY
     Dosage: (3 ML TID ORAL)
     Route: 048
     Dates: end: 20101007
  2. BIPERIDEN HYDROCHLORIDE TAB [Concomitant]
  3. XENAZINE [Suspect]
     Indication: DYSKINESIA
     Dosage: (25 MG QD ORAL)
     Route: 048
     Dates: start: 20101007, end: 20101125
  4. FRISIUM (FRISIUM - CLOBAZAM ) 5 MG (NOT SPECIFIED) [Suspect]
     Indication: EPILEPSY
     Dosage: (5 MG 1X/6 HOURS ORAL)
     Route: 048
     Dates: start: 20101007

REACTIONS (3)
  - DEPRESSED MOOD [None]
  - SUICIDAL IDEATION [None]
  - ABULIA [None]
